FAERS Safety Report 25575340 (Version 3)
Quarter: 2025Q3

REPORT INFORMATION
  Report Type: Spontaneous
  Country: US (occurrence: US)
  Receive Date: 20250718
  Receipt Date: 20250903
  Transmission Date: 20251021
  Serious: No
  Sender: LUPIN
  Company Number: US-LUPIN PHARMACEUTICALS INC.-2025-05980

PATIENT
  Age: 88 Year
  Weight: 61.235 kg

DRUGS (2)
  1. MOXIFLOXACIN HYDROCHLORIDE [Suspect]
     Active Substance: MOXIFLOXACIN HYDROCHLORIDE
     Indication: Eye infection
     Dosage: UNK, TID
  2. MOXIFLOXACIN HYDROCHLORIDE [Suspect]
     Active Substance: MOXIFLOXACIN HYDROCHLORIDE
     Indication: Eye discharge
     Dosage: UNK UNK, TID

REACTIONS (4)
  - Pruritus allergic [Recovering/Resolving]
  - Treatment noncompliance [Unknown]
  - Product prescribing error [Unknown]
  - Incorrect product administration duration [Unknown]
